FAERS Safety Report 13912968 (Version 2)
Quarter: 2017Q3

REPORT INFORMATION
  Report Type: Spontaneous
  Country: US (occurrence: US)
  Receive Date: 20170828
  Receipt Date: 20170911
  Transmission Date: 20171127
  Serious: Yes (Death, Hospitalization)
  Sender: FDA-Public Use
  Company Number: US-ACTELION-A-NJ2017-158525

PATIENT
  Age: 74 Year
  Sex: Male
  Weight: 81.63 kg

DRUGS (24)
  1. THEOPHYLLINE [Concomitant]
     Active Substance: THEOPHYLLINE ANHYDROUS
  2. ACETAZOLAMIDE. [Concomitant]
     Active Substance: ACETAZOLAMIDE
     Dosage: 250 MG, Q12HRS
  3. LASIX [Concomitant]
     Active Substance: FUROSEMIDE
     Dosage: 20 MG, 2 ML, PUSH QD
  4. CARDIZEM [Concomitant]
     Active Substance: DILTIAZEM HYDROCHLORIDE
     Dosage: 45 MG, Q6HRS
     Route: 049
  5. PROPOFOL. [Concomitant]
     Active Substance: PROPOFOL
     Dosage: 1000 MG, UNK
  6. QUETIAPINE. [Concomitant]
     Active Substance: QUETIAPINE
     Dosage: 25 MG, QD
     Route: 048
  7. IMMUNE GLOBULIN [Concomitant]
     Dosage: 9 G, UNK
     Route: 058
  8. ENOXAPARIN [Concomitant]
     Active Substance: ENOXAPARIN
     Dosage: 40 MG, 0.4 ML
     Route: 058
  9. FAMOTIDINE. [Concomitant]
     Active Substance: FAMOTIDINE
     Dosage: 20 ML,  2 ML Q12HRS
     Route: 042
  10. AMBISOME [Concomitant]
     Active Substance: AMPHOTERICIN B
     Dosage: 550 MG, 208.33 ML/HR IVPB
     Route: 042
  11. OPSUMIT [Suspect]
     Active Substance: MACITENTAN
     Indication: PULMONARY HYPERTENSION
     Dosage: 10 MG, QD
     Route: 048
     Dates: start: 20170620, end: 20170818
  12. CEFEPIME [Concomitant]
     Active Substance: CEFEPIME HYDROCHLORIDE
     Dosage: 1 GM 50 ML, 100 ML/HR IVPB, Q12HRS
  13. METHYLPREDNISOL SODIUM SUCCINATE [Concomitant]
     Active Substance: METHYLPREDNISOLONE SODIUM SUCCINATE
     Dosage: 40 MG, 1ML,Q8H
     Route: 042
  14. DUONEB [Concomitant]
     Active Substance: ALBUTEROL SULFATE\IPRATROPIUM BROMIDE
     Dosage: 3 ML, Q4HRS
     Route: 055
  15. LOSARTAN. [Concomitant]
     Active Substance: LOSARTAN
     Dosage: 100 MG (TITER), QHS
     Route: 048
  16. PULMICORT TURBUHALER [Concomitant]
     Active Substance: BUDESONIDE
     Dosage: 0.25 MG 2 ML, BID
     Route: 055
  17. PROPANOLOL [Concomitant]
     Active Substance: PROPRANOLOL HYDROCHLORIDE
     Dosage: 20 MG, BID
     Route: 048
  18. ADEMPAS [Suspect]
     Active Substance: RIOCIGUAT
     Indication: PULMONARY ARTERIAL HYPERTENSION
     Dosage: 1.5 MG, QD
     Route: 065
     Dates: start: 20170619, end: 20170818
  19. BROVANA [Concomitant]
     Active Substance: ARFORMOTEROL TARTRATE
     Dosage: 15 MCG, 2 ML BID
     Route: 055
  20. PRECEDEX [Concomitant]
     Active Substance: DEXMEDETOMIDINE HYDROCHLORIDE
     Dosage: 250 MG
     Route: 042
  21. FENTANYL. [Concomitant]
     Active Substance: FENTANYL
     Dosage: 1 CONTAINER INFUSION TITRATE IVPB
  22. HYDRALAZINE [Concomitant]
     Active Substance: HYDRALAZINE HYDROCHLORIDE
     Dosage: 50 MG, BID
     Route: 048
  23. TOBRAMYCIN. [Concomitant]
     Active Substance: TOBRAMYCIN
     Dosage: 300 MG, NEB BID
     Route: 055
  24. ALPRAZOLAM. [Concomitant]
     Active Substance: ALPRAZOLAM
     Dosage: 0.5 MG, TID, PRN
     Route: 048

REACTIONS (12)
  - Pneumonia klebsiella [Fatal]
  - Fatigue [Unknown]
  - Altered state of consciousness [Unknown]
  - Dyspnoea [Fatal]
  - Asthma [Unknown]
  - Acute respiratory failure [Fatal]
  - Pneumonia pseudomonal [Fatal]
  - Stupor [Unknown]
  - Chronic obstructive pulmonary disease [Unknown]
  - Immunodeficiency common variable [Unknown]
  - Dyspnoea exertional [Unknown]
  - Cor pulmonale chronic [Unknown]

NARRATIVE: CASE EVENT DATE: 20170724
